FAERS Safety Report 5045045-6 (Version None)
Quarter: 2006Q2

REPORT INFORMATION
  Report Type: 
  Country: None (occurrence: None)
  Receive Date: 20060601
  Receipt Date: 20060313
  Transmission Date: 20061013
  Serious: No
  Sender: FDA-Public Use
  Company Number: US200603003472

PATIENT
  Age: 62 Year
  Sex: Female
  Weight: 69.8 kg

DRUGS (1)
  1. CYMBALTA [Suspect]
     Indication: DEPRESSION
     Dosage: 60 MG
     Dates: start: 20040101

REACTIONS (5)
  - AFFECT LABILITY [None]
  - DRUG INEFFECTIVE [None]
  - HYPERHIDROSIS [None]
  - SLUGGISHNESS [None]
  - WEIGHT INCREASED [None]
